FAERS Safety Report 4682814-6 (Version None)
Quarter: 2005Q2

REPORT INFORMATION
  Report Type: 
  Country: None (occurrence: None)
  Receive Date: 20050606
  Receipt Date: 20050531
  Transmission Date: 20051028
  Serious: Yes (Death, Life-Threatening, Hospitalization)
  Sender: FDA-Public Use
  Company Number: 2005SE03197

PATIENT
  Age: 30983 Day
  Sex: Male
  Weight: 78 kg

DRUGS (10)
  1. ROSUVASTATIN [Suspect]
     Indication: CARDIAC FAILURE CONGESTIVE
     Dates: start: 20021114
  2. N-3 PUFA CODE NOT BROKEN [Suspect]
     Indication: CARDIAC FAILURE CONGESTIVE
     Dates: start: 20021112
  3. FUROSEMIDE [Concomitant]
     Indication: CARDIAC FAILURE
     Route: 048
  4. SPIRONOLACTONE [Concomitant]
     Indication: CARDIAC FAILURE
     Route: 048
  5. RAMIPRIL [Concomitant]
     Indication: CARDIAC FAILURE
     Route: 048
  6. ASPIRIN [Concomitant]
     Indication: CARDIAC FAILURE
     Route: 048
  7. ALLOPURINOLO [Concomitant]
     Indication: CARDIAC FAILURE
     Route: 048
  8. AMIODARONE HYDROCHLORIDE [Concomitant]
     Indication: CARDIAC FAILURE
     Route: 048
  9. NITRATES [Concomitant]
     Indication: CARDIAC FAILURE
     Route: 061
  10. SERTRALINA [Concomitant]

REACTIONS (3)
  - DISSEMINATED INTRAVASCULAR COAGULATION [None]
  - HEPATIC FAILURE [None]
  - RENAL FAILURE [None]
